FAERS Safety Report 14437264 (Version 1)
Quarter: 2018Q1

REPORT INFORMATION
  Report Type: Spontaneous
  Country: US (occurrence: US)
  Receive Date: 20180125
  Receipt Date: 20180125
  Transmission Date: 20180509
  Serious: Yes (Hospitalization, Disabling)
  Sender: FDA-Public Use
  Company Number: None

PATIENT
  Age: 70 Year
  Sex: Female
  Weight: 77.4 kg

DRUGS (3)
  1. PROLIXIN [Suspect]
     Active Substance: FLUPHENAZINE HYDROCHLORIDE
     Route: 030
  2. CALCIUM [Concomitant]
     Active Substance: CALCIUM
  3. ABILIFY [Suspect]
     Active Substance: ARIPIPRAZOLE

REACTIONS (13)
  - Insomnia [None]
  - Hyperhidrosis [None]
  - Vision blurred [None]
  - Dry mouth [None]
  - Injection site reaction [None]
  - Weight increased [None]
  - Constipation [None]
  - Depressed mood [None]
  - Somnolence [None]
  - Lethargy [None]
  - Nausea [None]
  - Diabetes mellitus [None]
  - Decreased appetite [None]

NARRATIVE: CASE EVENT DATE: 20180125
